FAERS Safety Report 12759914 (Version 1)
Quarter: 2016Q3

REPORT INFORMATION
  Report Type: Spontaneous
  Country: US (occurrence: US)
  Receive Date: 20160919
  Receipt Date: 20160919
  Transmission Date: 20161109
  Serious: No
  Sender: FDA-Public Use
  Company Number: PHHY2016US128745

PATIENT
  Age: 57 Year
  Sex: Female

DRUGS (1)
  1. CAMBIA [Suspect]
     Active Substance: DICLOFENAC POTASSIUM
     Indication: MIGRAINE
     Dosage: 50 MG, UNK (1 PACKET WITH 1 TO OUNCES OF WATER DRINK IMMEDIATELY AS A SINGLE DOSE)
     Route: 048
     Dates: start: 20160621

REACTIONS (1)
  - Drug ineffective [Not Recovered/Not Resolved]
